FAERS Safety Report 9197941 (Version 1)
Quarter: 2013Q1

REPORT INFORMATION
  Report Type: Report from Study
  Country: ES (occurrence: ES)
  Receive Date: 20130328
  Receipt Date: 20130328
  Transmission Date: 20140127
  Serious: Yes (Hospitalization)
  Sender: FDA-Public Use
  Company Number: ES-TEVA-394857USA

PATIENT
  Age: 47 Year
  Sex: Male

DRUGS (5)
  1. TREANDA [Suspect]
     Indication: NON-HODGKIN^S LYMPHOMA
     Dosage: REGIMEN #1
     Route: 042
     Dates: start: 20110725, end: 20110726
  2. ARA-C [Suspect]
     Indication: NON-HODGKIN^S LYMPHOMA
     Dosage: REGIMEN #1
  3. VP-16 [Suspect]
     Indication: NON-HODGKIN^S LYMPHOMA
     Dosage: REGIMEN #1
  4. MELPHALAN [Suspect]
     Indication: NON-HODGKIN^S LYMPHOMA
     Dosage: REGIMEN #1
  5. APO-METRONIDAZOLE [Concomitant]
     Indication: DIARRHOEA
     Route: 048
     Dates: start: 20110905

REACTIONS (4)
  - Clostridium difficile infection [Recovered/Resolved]
  - Diarrhoea [Recovered/Resolved]
  - Pyrexia [Recovered/Resolved]
  - Hypotension [Recovered/Resolved]
